FAERS Safety Report 20283829 (Version 5)
Quarter: 2022Q2

REPORT INFORMATION
  Report Type: Report from Study
  Country: US (occurrence: US)
  Receive Date: 20220103
  Receipt Date: 20220426
  Transmission Date: 20220721
  Serious: Yes (Hospitalization, Other)
  Sender: FDA-Public Use
  Company Number: US-MALLINCKRODT-T202105446

PATIENT
  Sex: Female
  Weight: 61 kg

DRUGS (3)
  1. CORTICOTROPIN [Suspect]
     Active Substance: CORTICOTROPIN
     Indication: Nephrotic syndrome
     Dosage: 80 UNITS, ONCE A WEEK
     Route: 065
     Dates: end: 202112
  2. CORTICOTROPIN [Suspect]
     Active Substance: CORTICOTROPIN
     Indication: Focal segmental glomerulosclerosis
     Dosage: UNK, RESTARTED
     Route: 065
  3. CORTICOTROPIN [Suspect]
     Active Substance: CORTICOTROPIN
     Dosage: 40 UNITS, TWICE WEEKLY
     Route: 058
     Dates: start: 20220318

REACTIONS (5)
  - COVID-19 [Unknown]
  - Diabetes mellitus [Unknown]
  - Unevaluable event [Unknown]
  - Systemic lupus erythematosus [Unknown]
  - Renal disorder [Unknown]
